FAERS Safety Report 5994262-7 (Version None)
Quarter: 2008Q4

REPORT INFORMATION
  Report Type: 
  Country: None (occurrence: None)
  Receive Date: 20081212
  Receipt Date: 20081112
  Transmission Date: 20090506
  Serious: Yes (Life-Threatening, Hospitalization, Disabling)
  Sender: FDA-Public Use
  Company Number: JP-PFIZER INC-2008075478

PATIENT

DRUGS (12)
  1. MIGLITOL [Suspect]
     Indication: TYPE 2 DIABETES MELLITUS
     Dosage: UNK
     Route: 048
     Dates: start: 20080519, end: 20080528
  2. AMARYL [Suspect]
     Indication: TYPE 2 DIABETES MELLITUS
     Dosage: 1 MG, UNK
     Route: 048
     Dates: start: 20070919, end: 20080528
  3. NOVORAPID [Suspect]
     Indication: TYPE 2 DIABETES MELLITUS
     Dosage: UNK
     Route: 058
     Dates: start: 20071106, end: 20080518
  4. NOVORAPID [Suspect]
     Dosage: 6 IU, UNK
     Route: 058
     Dates: start: 20080519, end: 20080528
  5. MECOBALAMIN [Concomitant]
     Dosage: 1.5 MG, UNK
     Route: 048
     Dates: start: 20051226
  6. KETAS [Concomitant]
     Dosage: 30 MG, UNK
     Route: 048
     Dates: start: 20051226
  7. NEUROVITAN [Concomitant]
     Dosage: 3DF
     Route: 048
     Dates: start: 20051226
  8. ADETPHOS [Concomitant]
     Dosage: 100 MG, UNK
     Route: 048
     Dates: start: 20051226
  9. IBURONOL [Concomitant]
     Dosage: 30 MG, UNK
     Route: 048
     Dates: start: 20051226
  10. BUFFERIN [Concomitant]
     Dosage: 81 MG, UNK
     Route: 048
     Dates: start: 20051226
  11. ENALAPRIL MALEATE [Concomitant]
     Dosage: 5 MG, UNK
     Route: 048
     Dates: start: 20051226
  12. SALIPEX [Concomitant]
     Dosage: 80 MG, UNK
     Route: 048
     Dates: start: 20051226

REACTIONS (2)
  - ADULT T-CELL LYMPHOMA/LEUKAEMIA [None]
  - HYPOGLYCAEMIA [None]
